FAERS Safety Report 14702861 (Version 1)
Quarter: 2018Q2

REPORT INFORMATION
  Report Type: Report from Study
  Country: US (occurrence: US)
  Receive Date: 20180402
  Receipt Date: 20180402
  Transmission Date: 20180711
  Serious: No
  Sender: FDA-Public Use
  Company Number: PHEH2018US012397

PATIENT
  Sex: Female

DRUGS (2)
  1. TEGRETOL [Suspect]
     Active Substance: CARBAMAZEPINE
     Indication: PRODUCT USED FOR UNKNOWN INDICATION
     Dosage: UNK
     Route: 065
  2. AMLODIPINE [Interacting]
     Active Substance: AMLODIPINE BESYLATE
     Indication: PRODUCT USED FOR UNKNOWN INDICATION
     Route: 065

REACTIONS (15)
  - Eye movement disorder [Unknown]
  - Constipation [Unknown]
  - Disorientation [Unknown]
  - Tongue discolouration [Unknown]
  - Muscle spasms [Unknown]
  - Tremor [Unknown]
  - Drug ineffective [Unknown]
  - Dizziness [Unknown]
  - Drug level increased [Unknown]
  - Headache [Unknown]
  - Confusional state [Unknown]
  - Drug interaction [Unknown]
  - Gastric pH decreased [Unknown]
  - Vision blurred [Unknown]
  - Dry mouth [Unknown]
